FAERS Safety Report 19244019 (Version 1)
Quarter: 2021Q2

REPORT INFORMATION
  Report Type: Report from Study
  Country: KR (occurrence: KR)
  Receive Date: 20210512
  Receipt Date: 20210512
  Transmission Date: 20210717
  Serious: Yes (Death, Hospitalization)
  Sender: FDA-Public Use
  Company Number: KR-CELLTRION INC.-2021KR006313

PATIENT

DRUGS (18)
  1. LEUCOVORIN [CALCIUM FOLINATE] [Suspect]
     Active Substance: LEUCOVORIN
     Indication: PRODUCT USED FOR UNKNOWN INDICATION
     Dosage: 294 MG
     Route: 042
     Dates: start: 20201211
  2. 5?FU [FLUOROURACIL] [Suspect]
     Active Substance: FLUOROURACIL
     Indication: PRODUCT USED FOR UNKNOWN INDICATION
     Dosage: 2205 MG
     Route: 042
     Dates: start: 20201211
  3. MORPHINE SULFATE. [Concomitant]
     Active Substance: MORPHINE SULFATE
     Indication: ABDOMINAL PAIN
     Dosage: 60 MG, QD
     Route: 042
     Dates: start: 20210123, end: 20210124
  4. TARGIN [Concomitant]
     Active Substance: NALOXONE HYDROCHLORIDE\OXYCODONE HYDROCHLORIDE
     Indication: BACK PAIN
     Dosage: (10/5), 1 TABLET BID
     Route: 048
     Dates: start: 20201215, end: 20201230
  5. SODIUM BICARBONATE. [Concomitant]
     Active Substance: SODIUM BICARBONATE
     Indication: PROPHYLAXIS
     Dosage: 10 G, PRN
     Route: 048
     Dates: start: 20201226, end: 20210124
  6. MORPHINE SULFATE. [Concomitant]
     Active Substance: MORPHINE SULFATE
     Indication: BACK PAIN
  7. TARGIN [Concomitant]
     Active Substance: NALOXONE HYDROCHLORIDE\OXYCODONE HYDROCHLORIDE
     Indication: ABDOMINAL PAIN
     Dosage: (5/2.5), 1 TABLET BID
     Route: 048
     Dates: start: 20201123, end: 20201214
  8. CIPROFLOXACIN. [Concomitant]
     Active Substance: CIPROFLOXACIN
     Indication: BACTERAEMIA
     Dosage: 400 MG, QD
     Route: 042
     Dates: start: 20210119, end: 20210124
  9. LEUCOVORIN [CALCIUM FOLINATE] [Suspect]
     Active Substance: LEUCOVORIN
     Dosage: 294 MG
     Route: 042
     Dates: start: 20201211
  10. ALOXI [Concomitant]
     Active Substance: PALONOSETRON HYDROCHLORIDE
     Indication: PROPHYLAXIS
     Dosage: 0.25 MG, PRN
     Route: 042
     Dates: start: 20201211, end: 20201211
  11. CIPROFLOXACIN. [Concomitant]
     Active Substance: CIPROFLOXACIN
     Indication: SEPSIS
  12. 5?FU [FLUOROURACIL] [Suspect]
     Active Substance: FLUOROURACIL
     Dosage: 2205 MG
     Route: 042
     Dates: start: 20201211
  13. TARGIN [Concomitant]
     Active Substance: NALOXONE HYDROCHLORIDE\OXYCODONE HYDROCHLORIDE
     Dosage: (5/2.5), 1 TABLET BID
     Route: 048
     Dates: start: 20201230, end: 20210115
  14. OXALIPLATIN. [Suspect]
     Active Substance: OXALIPLATIN
     Indication: PRODUCT USED FOR UNKNOWN INDICATION
     Dosage: 73.5 MG
     Route: 042
     Dates: start: 20201211
  15. OXALIPLATIN. [Suspect]
     Active Substance: OXALIPLATIN
     Dosage: 73.5 MG
     Route: 042
     Dates: start: 20201211
  16. CT?P6 [Suspect]
     Active Substance: INVESTIGATIONAL BIOSIMILARS
     Indication: PRODUCT USED FOR UNKNOWN INDICATION
     Dosage: 300 MG
     Route: 042
     Dates: start: 20201211
  17. CT?P6 [Suspect]
     Active Substance: INVESTIGATIONAL BIOSIMILARS
     Dosage: 200 MG
     Route: 042
     Dates: start: 20201211
  18. COMBIFLEX [ALANINE;ARGININE;CALCIUM HYDROXIDE;GLUCOSE MONOHYDRATE;GLYC [Concomitant]
     Indication: DECREASED APPETITE
     Dosage: 1000 ML, QOD
     Route: 042
     Dates: start: 20201203, end: 20201223

REACTIONS (2)
  - Death [Fatal]
  - Blood bilirubin increased [Recovered/Resolved]

NARRATIVE: CASE EVENT DATE: 20201229
